FAERS Safety Report 5958888-9 (Version None)
Quarter: 2008Q4

REPORT INFORMATION
  Report Type: 
  Country: None (occurrence: None)
  Receive Date: 20081118
  Receipt Date: 20081104
  Transmission Date: 20090506
  Serious: Yes (Death, Hospitalization)
  Sender: FDA-Public Use
  Company Number: 2008002738

PATIENT
  Age: 71 Year
  Sex: Female
  Weight: 63.4 kg

DRUGS (11)
  1. ERLOTINIB (ERLOTINIB) (TABLET) (ERLOTINIB) [Suspect]
     Indication: NON-SMALL CELL LUNG CANCER
     Dosage: (QD), ORAL
     Route: 048
     Dates: start: 20080214
  2. BEVACIZUMAB (INJECTION FOR INFUSION) [Suspect]
     Indication: NON-SMALL CELL LUNG CANCER
     Dosage: (985, Q3W), INTRAVENOUS
     Route: 042
     Dates: start: 20070718, end: 20080825
  3. ERLOTINIB / PLACEBO(ERLOTINIB HCL) (TABLET) (ERLOTINIB HCL) [Suspect]
     Indication: NON-SMALL CELL LUNG CANCER
     Dosage: (150 MG, QD), ORAL
     Route: 048
     Dates: start: 20071010, end: 20080213
  4. ZOCOR [Concomitant]
  5. FLUOXETINE [Concomitant]
  6. OXYGEN (OXYGEN) [Concomitant]
  7. ESCITALOPRAM OXALATE [Concomitant]
  8. IRBESARTAN [Concomitant]
  9. HYDROCHLOROTHIAZIDE [Concomitant]
  10. FOLIC ACID [Concomitant]
  11. LEVOTHYROXINE SODIUM [Concomitant]

REACTIONS (6)
  - BONE PAIN [None]
  - CARDIO-RESPIRATORY ARREST [None]
  - HAEMOGLOBIN DECREASED [None]
  - MUSCULOSKELETAL PAIN [None]
  - RESPIRATORY TRACT HAEMORRHAGE [None]
  - UNRESPONSIVE TO STIMULI [None]
